FAERS Safety Report 9396833 (Version 1)
Quarter: 2013Q3

REPORT INFORMATION
  Report Type: Spontaneous
  Country: US (occurrence: US)
  Receive Date: 20130712
  Receipt Date: 20130712
  Transmission Date: 20140515
  Serious: No
  Sender: FDA-Public Use
  Company Number: US-BIOGENIDEC-2013BI062216

PATIENT
  Sex: Male

DRUGS (1)
  1. AVONEX [Suspect]
     Indication: MULTIPLE SCLEROSIS
     Route: 030

REACTIONS (8)
  - Balance disorder [Not Recovered/Not Resolved]
  - Injection site haemorrhage [Unknown]
  - Injection site induration [Not Recovered/Not Resolved]
  - Cardiac disorder [Recovered/Resolved]
  - Injury associated with device [Recovered/Resolved]
  - Feeling cold [Recovered/Resolved]
  - Headache [Recovered/Resolved with Sequelae]
  - Injection site pain [Unknown]
